FAERS Safety Report 9558555 (Version 1)
Quarter: 2013Q3

REPORT INFORMATION
  Report Type: Report from Study
  Country: IR (occurrence: IR)
  Receive Date: 20130926
  Receipt Date: 20130926
  Transmission Date: 20140515
  Serious: Yes (Hospitalization)
  Sender: FDA-Public Use
  Company Number: IR-ROCHE-1279818

PATIENT
  Sex: 0

DRUGS (4)
  1. PEG-INTERFERON ALFA 2A [Suspect]
     Indication: CHRONIC HEPATITIS C
     Route: 058
  2. PEG-INTERFERON ALFA 2A [Suspect]
     Indication: THALASSAEMIA BETA
  3. RIBAVIRIN [Suspect]
     Indication: CHRONIC HEPATITIS C
     Dosage: 600-800 MG PER DAY
     Route: 048
  4. RIBAVIRIN [Suspect]
     Indication: THALASSAEMIA BETA

REACTIONS (5)
  - Sepsis [Unknown]
  - Diabetic ketoacidosis [Unknown]
  - Cardiac failure [Unknown]
  - Depression [Unknown]
  - Hepatic failure [Unknown]
